FAERS Safety Report 18756779 (Version 1)
Quarter: 2021Q1

REPORT INFORMATION
  Report Type: Spontaneous
  Country: US (occurrence: US)
  Receive Date: 20210118
  Receipt Date: 20210118
  Transmission Date: 20210419
  Serious: No
  Sender: FDA-Public Use
  Company Number: None

PATIENT
  Age: 29 Year
  Sex: Male
  Weight: 96.75 kg

DRUGS (15)
  1. VITAMIN C [Concomitant]
     Active Substance: ASCORBIC ACID
  2. MONTELUKAST [Suspect]
     Active Substance: MONTELUKAST SODIUM
     Indication: RHINITIS
     Route: 055
     Dates: start: 20170901
  3. SERTRALINE [Concomitant]
     Active Substance: SERTRALINE HYDROCHLORIDE
  4. APAP [Concomitant]
     Active Substance: ACETAMINOPHEN
  5. ALBUTEROL. [Concomitant]
     Active Substance: ALBUTEROL
  6. VITAMIN B [Concomitant]
     Active Substance: VITAMIN B
  7. MAGNESIUM [Concomitant]
     Active Substance: MAGNESIUM
  8. PROPRANOLOL [Concomitant]
     Active Substance: PROPRANOLOL HYDROCHLORIDE
  9. MONTELUKAST [Suspect]
     Active Substance: MONTELUKAST SODIUM
     Indication: ASTHMA
     Route: 055
     Dates: start: 20170901
  10. VITAMIN D [Concomitant]
     Active Substance: VITAMIN D NOS
  11. VITAMIN E [Concomitant]
     Active Substance: .ALPHA.-TOCOPHEROL
  12. L?THEANINE [Concomitant]
     Active Substance: DIETARY SUPPLEMENT
  13. CLONIDINE. [Concomitant]
     Active Substance: CLONIDINE
  14. ASPIRIN. [Concomitant]
     Active Substance: ASPIRIN
  15. GLUTATHIONE [Concomitant]
     Active Substance: GLUTATHIONE

REACTIONS (3)
  - Anger [None]
  - Mood swings [None]
  - Aggression [None]

NARRATIVE: CASE EVENT DATE: 20170914
